FAERS Safety Report 16460056 (Version 1)
Quarter: 2019Q2

REPORT INFORMATION
  Report Type: Spontaneous
  Country: BG (occurrence: BG)
  Receive Date: 20190620
  Receipt Date: 20190620
  Transmission Date: 20190711
  Serious: Yes (Other)
  Sender: FDA-Public Use
  Company Number: BG-ASTRAZENECA-2019SE87799

PATIENT
  Age: 62 Year
  Sex: Male

DRUGS (6)
  1. ATORVASTATIN [Concomitant]
     Active Substance: ATORVASTATIN
     Dosage: 20.0MG UNKNOWN
  2. PANTOPRAZOLE [Concomitant]
     Active Substance: PANTOPRAZOLE
     Dosage: 20.0MG UNKNOWN
  3. ASPIRIN. [Concomitant]
     Active Substance: ASPIRIN
     Dosage: 100.0MG UNKNOWN
  4. BISOPROLOL [Concomitant]
     Active Substance: BISOPROLOL
     Dosage: 5.0MG UNKNOWN
  5. PANTOPRAZOLE [Concomitant]
     Active Substance: PANTOPRAZOLE
     Dosage: 40.0MG UNKNOWN
  6. TICAGRELOR. [Suspect]
     Active Substance: TICAGRELOR
     Route: 048

REACTIONS (12)
  - Coronary artery disease [Unknown]
  - Diastolic dysfunction [Unknown]
  - Haemoglobin decreased [Unknown]
  - Duodenal ulcer [Unknown]
  - Pneumonia [Unknown]
  - Ejection fraction decreased [Unknown]
  - Ischaemic mitral regurgitation [Unknown]
  - Gastritis [Unknown]
  - Anaemia [Unknown]
  - Ventricular hypokinesia [Unknown]
  - Fatigue [Unknown]
  - Haemorrhage [Unknown]
